FAERS Safety Report 24294261 (Version 2)
Quarter: 2025Q3

REPORT INFORMATION
  Report Type: Spontaneous
  Country: US (occurrence: US)
  Receive Date: 20240906
  Receipt Date: 20250905
  Transmission Date: 20251020
  Serious: No
  Sender: DOMPE FARMACEUTICI
  Company Number: US-FARMAPROD-202406-2292

PATIENT
  Age: 76 Year
  Sex: Female

DRUGS (13)
  1. OXERVATE [Suspect]
     Active Substance: CENEGERMIN-BKBJ
     Indication: Neurotrophic keratopathy
     Route: 047
     Dates: start: 20240616
  2. OXERVATE [Suspect]
     Active Substance: CENEGERMIN-BKBJ
  3. TAGRISSO [Concomitant]
     Active Substance: OSIMERTINIB
  4. RESTASIS [Concomitant]
     Active Substance: CYCLOSPORINE
  5. MIRTAZAPINE [Concomitant]
     Active Substance: MIRTAZAPINE
  6. PRAVASTATIN SODIUM [Concomitant]
     Active Substance: PRAVASTATIN SODIUM
  7. LOSARTAN POTASSIUM [Concomitant]
     Active Substance: LOSARTAN POTASSIUM
  8. CARVEDILOL [Concomitant]
     Active Substance: CARVEDILOL
  9. ASPIRIN [Concomitant]
     Active Substance: ASPIRIN
  10. AMLODIPINE BESYLATE [Concomitant]
     Active Substance: AMLODIPINE BESYLATE
  11. MUCINEX FASTMAX COLD-FLU [Concomitant]
  12. MUCINEX [Concomitant]
     Active Substance: GUAIFENESIN
  13. CEPHALEXIN [Concomitant]
     Active Substance: CEPHALEXIN

REACTIONS (6)
  - Eye pain [Not Recovered/Not Resolved]
  - Eye irritation [Not Recovered/Not Resolved]
  - Eye discharge [Not Recovered/Not Resolved]
  - Photophobia [Not Recovered/Not Resolved]
  - Ear pain [Unknown]
  - Product dose omission issue [Unknown]

NARRATIVE: CASE EVENT DATE: 20240616
